FAERS Safety Report 14620125 (Version 1)
Quarter: 2018Q1

REPORT INFORMATION
  Report Type: Report from Study
  Country: US (occurrence: US)
  Receive Date: 20180309
  Receipt Date: 20180309
  Transmission Date: 20180509
  Serious: Yes (Other)
  Sender: FDA-Public Use
  Company Number: US-UCBSA-2018009318

PATIENT
  Sex: Male
  Weight: 137 kg

DRUGS (17)
  1. KEPPRA [Suspect]
     Active Substance: LEVETIRACETAM
     Indication: SEIZURE
     Dosage: UNK
  2. KEPPRA [Suspect]
     Active Substance: LEVETIRACETAM
     Dosage: 1000MG TAB 1 IN AM, 1/2 IN AFTERNOON, AND 1 AT BEDTIME, 3X/DAY (TID)
     Route: 048
     Dates: start: 20180124
  3. GLUCOTROL [Concomitant]
     Active Substance: GLIPIZIDE
     Indication: PRODUCT USED FOR UNKNOWN INDICATION
  4. HYZAAR [Concomitant]
     Active Substance: HYDROCHLOROTHIAZIDE\LOSARTAN POTASSIUM
     Indication: PRODUCT USED FOR UNKNOWN INDICATION
  5. ASPIRIN. [Concomitant]
     Active Substance: ASPIRIN
     Indication: PRODUCT USED FOR UNKNOWN INDICATION
  6. INSULIN [Concomitant]
     Active Substance: INSULIN NOS
     Indication: PRODUCT USED FOR UNKNOWN INDICATION
  7. KEPPRA [Suspect]
     Active Substance: LEVETIRACETAM
     Dosage: 1000MG BID TAB 1 IN AM, 1/2 IN AFTERNOON, AND 1 AT BEDTIME
     Route: 048
     Dates: start: 20180124
  8. ACTOS [Concomitant]
     Active Substance: PIOGLITAZONE HYDROCHLORIDE
     Indication: PRODUCT USED FOR UNKNOWN INDICATION
  9. ROBITUSSIN AC [Concomitant]
     Indication: PRODUCT USED FOR UNKNOWN INDICATION
  10. MEVACOR [Concomitant]
     Active Substance: LOVASTATIN
     Indication: PRODUCT USED FOR UNKNOWN INDICATION
  11. LACOSAMIDE. [Suspect]
     Active Substance: LACOSAMIDE
     Indication: SEIZURE
     Dosage: 150 MG, 2X/DAY (BID)
     Route: 048
     Dates: start: 20180124
  12. NORVASC [Concomitant]
     Active Substance: AMLODIPINE BESYLATE
     Indication: PRODUCT USED FOR UNKNOWN INDICATION
  13. GLUCOPHAGE [Concomitant]
     Active Substance: METFORMIN HYDROCHLORIDE
     Indication: PRODUCT USED FOR UNKNOWN INDICATION
  14. LAMICTAL [Concomitant]
     Active Substance: LAMOTRIGINE
     Indication: PRODUCT USED FOR UNKNOWN INDICATION
  15. VICTOZA [Concomitant]
     Active Substance: LIRAGLUTIDE
     Indication: PRODUCT USED FOR UNKNOWN INDICATION
  16. KLONOPIN [Concomitant]
     Active Substance: CLONAZEPAM
     Indication: PRODUCT USED FOR UNKNOWN INDICATION
  17. METOPROLOL SUCCINATE. [Concomitant]
     Active Substance: METOPROLOL SUCCINATE
     Indication: PRODUCT USED FOR UNKNOWN INDICATION

REACTIONS (12)
  - Focal dyscognitive seizures [Unknown]
  - Cough [Unknown]
  - Polydipsia [Unknown]
  - Dizziness [Unknown]
  - Nervousness [Unknown]
  - Diarrhoea [Unknown]
  - Feeling drunk [Unknown]
  - Dyspnoea [Unknown]
  - Anxiety [Unknown]
  - Polyuria [Unknown]
  - Sleep disorder [Unknown]
  - Off label use [Unknown]
